FAERS Safety Report 23640478 (Version 1)
Quarter: 2024Q1

REPORT INFORMATION
  Report Type: Spontaneous
  Country: US (occurrence: US)
  Receive Date: 20240317
  Receipt Date: 20240317
  Transmission Date: 20240409
  Serious: No
  Sender: FDA-Public Use
  Company Number: US-SA-2024SA083932

PATIENT
  Age: 83 Year
  Sex: Female

DRUGS (3)
  1. KEVZARA [Suspect]
     Active Substance: SARILUMAB
     Indication: Rheumatoid arthritis
     Dosage: 200 MG, QOW
     Route: 058
     Dates: start: 20231015
  2. KEVZARA [Suspect]
     Active Substance: SARILUMAB
     Indication: Osteoarthritis
  3. KEVZARA [Suspect]
     Active Substance: SARILUMAB
     Indication: Osteoporosis

REACTIONS (2)
  - Localised infection [Unknown]
  - Product use in unapproved indication [Unknown]

NARRATIVE: CASE EVENT DATE: 20231015
